FAERS Safety Report 4390765-X (Version None)
Quarter: 2004Q3

REPORT INFORMATION
  Report Type: 
  Country: None (occurrence: None)
  Receive Date: 20040706
  Receipt Date: 20040706
  Transmission Date: 20050211
  Serious: Yes (Hospitalization)
  Sender: FDA-Public Use
  Company Number: None

PATIENT
  Age: 75 Year
  Sex: Female
  Weight: 69 kg

DRUGS (18)
  1. THEOPHYLLINE [Suspect]
     Indication: CHRONIC OBSTRUCTIVE AIRWAYS DISEASE
     Dosage: 300 MG Q8H ORAL
     Route: 048
     Dates: start: 19850101, end: 20040303
  2. AMIODARONE HCL [Suspect]
     Indication: ATRIAL FIBRILLATION
     Dosage: 400 MG Q 12 H ORAL
     Route: 048
     Dates: start: 20040227, end: 20040702
  3. LEVOFLOXACIN [Concomitant]
  4. AZITHROMYCIN [Concomitant]
  5. ALPRAZOLAM [Concomitant]
  6. PREDNISONE [Concomitant]
  7. ALBUTEROL./ATRIVENT NEBS [Concomitant]
  8. SALMETEROL [Concomitant]
  9. FUROSEMIDE [Concomitant]
  10. DIGOXIN [Concomitant]
  11. DILTIAZEM [Concomitant]
  12. RAMIPRIL [Concomitant]
  13. PANTOPRAZOLE [Concomitant]
  14. PRAVASTATIN [Concomitant]
  15. ASPIRIN [Concomitant]
  16. CLOPIDOGREL [Concomitant]
  17. MIRTAZAPINE [Concomitant]
  18. INSULIN [Concomitant]

REACTIONS (5)
  - CHRONIC OBSTRUCTIVE AIRWAYS DISEASE EXACERBATED [None]
  - DRUG INTERACTION [None]
  - DRUG LEVEL INCREASED [None]
  - LOBAR PNEUMONIA [None]
  - TACHYCARDIA [None]
